FAERS Safety Report 8318729 (Version 6)
Quarter: 2013Q1

REPORT INFORMATION
  Report Type: Spontaneous
  Country: IN (occurrence: IN)
  Receive Date: 20120103
  Receipt Date: 20130328
  Transmission Date: 20140127
  Serious: Yes (Death, Hospitalization, Other)
  Sender: FDA-Public Use
  Company Number: IN-PFIZER INC-2011287310

PATIENT
  Age: 78 Year
  Sex: Male

DRUGS (1)
  1. SUTENT [Suspect]
     Indication: METASTATIC RENAL CELL CARCINOMA
     Dosage: 50 MG, 1X/DAY
     Route: 048
     Dates: start: 20110908, end: 201210

REACTIONS (14)
  - Death [Fatal]
  - Abdominal pain [Not Recovered/Not Resolved]
  - Cholelithiasis [Not Recovered/Not Resolved]
  - Urinary tract infection [Unknown]
  - Vomiting [Recovering/Resolving]
  - Pyrexia [Recovering/Resolving]
  - Blood pressure decreased [Not Recovered/Not Resolved]
  - Vomiting [Unknown]
  - Pruritus genital [Unknown]
  - Genital rash [Unknown]
  - Mouth ulceration [Unknown]
  - Eye swelling [Unknown]
  - Dysgeusia [Recovering/Resolving]
  - Decreased appetite [Recovering/Resolving]
